FAERS Safety Report 9485717 (Version 1)
Quarter: 2013Q3

REPORT INFORMATION
  Report Type: Spontaneous
  Country: US (occurrence: None)
  Receive Date: 20130827
  Receipt Date: 20130827
  Transmission Date: 20140515
  Serious: No
  Sender: FDA-Public Use
  Company Number: None

PATIENT
  Age: 74 Year
  Sex: Male
  Weight: 72 kg

DRUGS (1)
  1. HEPARIN [Suspect]
     Indication: THROMBOLYSIS
     Dosage: 750-800 UNITS  CONTINUOUS INFUSION IV
     Dates: start: 20130511, end: 20130513

REACTIONS (1)
  - Platelet count decreased [None]
